FAERS Safety Report 4799672-1 (Version None)
Quarter: 2005Q4

REPORT INFORMATION
  Report Type: 
  Country: None (occurrence: None)
  Receive Date: 20051013
  Receipt Date: 20050927
  Transmission Date: 20060501
  Serious: Yes (Death)
  Sender: FDA-Public Use
  Company Number: 2005125102

PATIENT
  Sex: Male

DRUGS (2)
  1. FRAGMIN [Suspect]
     Indication: VENOUS THROMBOSIS LIMB
     Dosage: INTRAVENOUS
     Route: 042
     Dates: start: 20050906
  2. FUTHAN (NAFAMOSTAT MESILATE) [Concomitant]

REACTIONS (1)
  - HAEMORRHAGE [None]
